FAERS Safety Report 14314569 (Version 4)
Quarter: 2018Q2

REPORT INFORMATION
  Report Type: Spontaneous
  Country: GB (occurrence: GB)
  Receive Date: 20171221
  Receipt Date: 20180620
  Transmission Date: 20180711
  Serious: Yes (Other)
  Sender: FDA-Public Use
  Company Number: GB-TEVA-2017-GB-834696

PATIENT
  Age: 62 Year
  Sex: Male
  Weight: 70 kg

DRUGS (2)
  1. TAMSULOSIN [Suspect]
     Active Substance: TAMSULOSIN
     Indication: BENIGN PROSTATIC HYPERPLASIA
     Dosage: 400 MICROGRAM DAILY;
     Route: 048
     Dates: start: 20170814
  2. OMEPRAZOLE. [Concomitant]
     Active Substance: OMEPRAZOLE
     Indication: GASTRIC DISORDER
     Dosage: ONGOING
     Dates: start: 2013

REACTIONS (5)
  - Abnormal weight gain [Not Recovered/Not Resolved]
  - Epistaxis [Recovered/Resolved]
  - Chills [Recovered/Resolved]
  - Pain in jaw [Recovered/Resolved]
  - Hypertension [Not Recovered/Not Resolved]

NARRATIVE: CASE EVENT DATE: 20170814
